FAERS Safety Report 5893255-8 (Version None)
Quarter: 2008Q3

REPORT INFORMATION
  Report Type: 
  Country: None (occurrence: None)
  Receive Date: 20080923
  Receipt Date: 20080912
  Transmission Date: 20090109
  Serious: Yes (Other)
  Sender: FDA-Public Use
  Company Number: US-BAYER-200826629GPV

PATIENT

DRUGS (2)
  1. CAMPATH [Suspect]
     Indication: IMMUNOSUPPRESSION
     Route: 065
  2. ANTIVIRALS [Concomitant]
     Indication: ANTIVIRAL PROPHYLAXIS

REACTIONS (1)
  - CYTOMEGALOVIRUS INFECTION [None]
